FAERS Safety Report 13555304 (Version 1)
Quarter: 2017Q2

REPORT INFORMATION
  Report Type: Spontaneous
  Country: US (occurrence: US)
  Receive Date: 20170517
  Receipt Date: 20170517
  Transmission Date: 20170830
  Serious: Yes (Other)
  Sender: FDA-Public Use
  Company Number: US-CORCEPT THERAPEUTICS INC.-US-2017CRT000313

PATIENT

DRUGS (5)
  1. KORLYM [Suspect]
     Active Substance: MIFEPRISTONE
     Indication: CUSHING^S SYNDROME
     Dosage: 600 MG, QD
     Route: 048
     Dates: start: 201512
  2. KORLYM [Suspect]
     Active Substance: MIFEPRISTONE
     Indication: PITUITARY TUMOUR
  3. KORLYM [Suspect]
     Active Substance: MIFEPRISTONE
     Indication: ENDOCRINE NEOPLASM
  4. KORLYM [Suspect]
     Active Substance: MIFEPRISTONE
     Indication: CUSHING^S SYNDROME
     Dosage: 300 MG, QD
     Route: 048
     Dates: start: 20151204, end: 201512
  5. KORLYM [Suspect]
     Active Substance: MIFEPRISTONE
     Indication: NERVOUS SYSTEM NEOPLASM

REACTIONS (3)
  - Nephrolithiasis [Not Recovered/Not Resolved]
  - Amenorrhoea [Unknown]
  - Blood urine present [Not Recovered/Not Resolved]

NARRATIVE: CASE EVENT DATE: 201511
